FAERS Safety Report 5884342-9 (Version None)
Quarter: 2008Q3

REPORT INFORMATION
  Report Type: 
  Country: None (occurrence: None)
  Receive Date: 20080915
  Receipt Date: 20080903
  Transmission Date: 20090109
  Serious: Yes (Other)
  Sender: FDA-Public Use
  Company Number: US-PFIZER INC-2008074517

PATIENT
  Sex: Male
  Weight: 86.2 kg

DRUGS (3)
  1. LYRICA [Suspect]
     Indication: NEUROPATHY PERIPHERAL
     Route: 048
     Dates: start: 20071201, end: 20080903
  2. CENTRUM [Concomitant]
  3. ZETIA [Concomitant]
     Indication: BLOOD CHOLESTEROL INCREASED

REACTIONS (3)
  - DYSURIA [None]
  - HAEMATURIA [None]
  - NEUROPATHY PERIPHERAL [None]
